FAERS Safety Report 5346020-4 (Version None)
Quarter: 2007Q2

REPORT INFORMATION
  Report Type: 
  Country: None (occurrence: None)
  Receive Date: 20070605
  Receipt Date: 20070530
  Transmission Date: 20071010
  Serious: Yes (Hospitalization)
  Sender: FDA-Public Use
  Company Number: DE-GENENTECH-242304

PATIENT
  Sex: Female
  Weight: 68 kg

DRUGS (4)
  1. RITUXIMAB [Suspect]
     Indication: RHEUMATOID ARTHRITIS
     Dosage: 1000 MG, UNK
     Route: 042
     Dates: start: 20070122, end: 20070207
  2. METHOTREXATE SODIUM [Suspect]
     Indication: RHEUMATOID ARTHRITIS
     Dosage: 15 MG, 1/WEEK
     Route: 058
  3. ARCOXIA [Suspect]
     Indication: RHEUMATOID ARTHRITIS
     Dosage: 90 MG, PRN
     Route: 048
  4. CALCIMAGON-D3 [Concomitant]
     Indication: OSTEOPOROSIS
     Dosage: 1000 G, QD
     Route: 048

REACTIONS (1)
  - DEAFNESS [None]
